FAERS Safety Report 9464564 (Version 1)
Quarter: 2013Q3

REPORT INFORMATION
  Report Type: Report from Study
  Country: GB (occurrence: GB)
  Receive Date: 20130819
  Receipt Date: 20130819
  Transmission Date: 20140515
  Serious: Yes (Death, Hospitalization)
  Sender: FDA-Public Use
  Company Number: GB-JNJFOC-20130804837

PATIENT
  Sex: Male
  Weight: 130 kg

DRUGS (8)
  1. USTEKINUMAB [Suspect]
     Indication: PSORIASIS
     Route: 058
     Dates: start: 20120121
  2. CETIRIZINE [Concomitant]
     Route: 065
     Dates: start: 20070615
  3. WARFARIN [Concomitant]
     Route: 065
     Dates: start: 20110615
  4. RAMIPRIL [Concomitant]
     Route: 065
     Dates: start: 20110615
  5. DIGOXIN [Concomitant]
     Route: 065
     Dates: start: 20110615
  6. FUROSEMIDE [Concomitant]
     Route: 065
     Dates: start: 20111115
  7. VITAMIN D [Concomitant]
     Route: 065
     Dates: start: 20070615
  8. FOLIC ACID [Concomitant]
     Route: 065
     Dates: start: 20050530

REACTIONS (3)
  - Alcoholic liver disease [Fatal]
  - Pneumonia [Fatal]
  - Cardiac failure [Fatal]
